FAERS Safety Report 9319944 (Version 1)
Quarter: 2013Q2

REPORT INFORMATION
  Report Type: Spontaneous
  Country: BR (occurrence: BR)
  Receive Date: 20130530
  Receipt Date: 20130530
  Transmission Date: 20140414
  Serious: Yes (Other)
  Sender: FDA-Public Use
  Company Number: BR-PFIZER INC-2013163990

PATIENT
  Age: 64 Year
  Sex: Female
  Weight: 96 kg

DRUGS (2)
  1. CELEBRA [Suspect]
     Dosage: STRENGTH 200MG
     Dates: start: 2003
  2. LYRICA [Suspect]
     Dosage: 75 MG PER DAY
     Dates: start: 2011

REACTIONS (3)
  - Fall [Unknown]
  - Upper limb fracture [Unknown]
  - Limb injury [Unknown]
